FAERS Safety Report 8993519 (Version 3)
Quarter: 2013Q3

REPORT INFORMATION
  Report Type: Spontaneous
  Country: FR (occurrence: FR)
  Receive Date: 20130102
  Receipt Date: 20130807
  Transmission Date: 20140515
  Serious: Yes (Hospitalization, Other)
  Sender: FDA-Public Use
  Company Number: FR-BRISTOL-MYERS SQUIBB COMPANY-17247297

PATIENT
  Age: 44 Year
  Sex: Male
  Weight: 63.99 kg

DRUGS (10)
  1. REYATAZ [Suspect]
     Indication: HIV INFECTION
     Dates: start: 20120705, end: 20120707
  2. TRUVADA [Suspect]
     Indication: HIV INFECTION
     Dosage: 1DF=200 MG/245 MG ?05JUL-10JUL12,13JUL-17JUL12
     Dates: start: 20120705, end: 20120717
  3. MALOCIDE [Suspect]
     Indication: PROPHYLAXIS
     Dosage: TAB
     Dates: start: 20120705, end: 20120717
  4. CELSENTRI [Suspect]
     Indication: HIV INFECTION
     Dosage: 1 DF = 150 UNITS NOS
     Dates: start: 20120705, end: 20120717
  5. NORVIR [Suspect]
     Indication: HIV INFECTION
     Dates: start: 20120705, end: 20120707
  6. LEDERFOLINE [Suspect]
     Indication: HIV INFECTION
     Dates: start: 20120705
  7. PENTACARINAT [Suspect]
     Indication: HIV INFECTION
     Dates: start: 20120623, end: 20120717
  8. ISENTRESS [Suspect]
     Indication: HIV INFECTION
     Dates: start: 20120713, end: 20120717
  9. KIVEXA [Suspect]
  10. PREZISTA [Suspect]

REACTIONS (9)
  - Toxic skin eruption [Recovering/Resolving]
  - Pancytopenia [Recovering/Resolving]
  - Diarrhoea [Recovered/Resolved]
  - Nausea [Recovered/Resolved]
  - Jaundice [Recovered/Resolved]
  - Asthenia [Unknown]
  - Decreased appetite [Unknown]
  - Giardiasis [Unknown]
  - Aphthous stomatitis [Unknown]
